FAERS Safety Report 16029160 (Version 1)
Quarter: 2019Q1

REPORT INFORMATION
  Report Type: Spontaneous
  Country: US (occurrence: US)
  Receive Date: 20190302
  Receipt Date: 20190302
  Transmission Date: 20190418
  Serious: No
  Sender: FDA-Public Use
  Company Number: None

PATIENT
  Age: 39 Year
  Sex: Female
  Weight: 61.2 kg

DRUGS (1)
  1. BOTOX COSMETIC [Suspect]
     Active Substance: ONABOTULINUMTOXINA
     Indication: SKIN WRINKLING
     Dosage: ?          QUANTITY:27.5 INJECTION(S);?
     Dates: start: 20190225

REACTIONS (9)
  - Nausea [None]
  - Neck pain [None]
  - Headache [None]
  - Tremor [None]
  - Urinary incontinence [None]
  - Grip strength decreased [None]
  - Fatigue [None]
  - Dizziness [None]
  - Hot flush [None]

NARRATIVE: CASE EVENT DATE: 20190225
